FAERS Safety Report 9168590 (Version 1)
Quarter: 2013Q1

REPORT INFORMATION
  Report Type: Spontaneous
  Country: US (occurrence: None)
  Receive Date: 20130314
  Receipt Date: 20130314
  Transmission Date: 20140127
  Serious: Yes (Death)
  Sender: FDA-Public Use
  Company Number: None

PATIENT
  Age: 87 Year
  Sex: Female

DRUGS (8)
  1. PROMACTA [Suspect]
     Indication: IDIOPATHIC THROMBOCYTOPENIC PURPURA
     Route: 048
     Dates: start: 201301, end: 201303
  2. PREDNISONE [Concomitant]
  3. AMBIEN [Concomitant]
  4. LASIX [Concomitant]
  5. ISORDIL [Concomitant]
  6. DILTIAZEM [Concomitant]
  7. LIPITOR [Concomitant]
  8. ATENOLOLZANTAC [Concomitant]

REACTIONS (3)
  - Pneumonia [None]
  - Sepsis [None]
  - Renal failure chronic [None]
